FAERS Safety Report 10913623 (Version 1)
Quarter: 2015Q1

REPORT INFORMATION
  Report Type: Spontaneous
  Country: US (occurrence: None)
  Receive Date: 20150311
  Receipt Date: 20150311
  Transmission Date: 20150721
  Serious: No
  Sender: FDA-Public Use
  Company Number: None

PATIENT
  Age: 49 Year
  Sex: Male
  Weight: 70.31 kg

DRUGS (1)
  1. CHANTIX [Suspect]
     Active Substance: VARENICLINE TARTRATE
     Indication: SMOKING CESSATION THERAPY
     Dosage: TAKEN BY MOUTH
     Dates: start: 20120301, end: 20120315

REACTIONS (2)
  - Panic reaction [None]
  - Alopecia [None]

NARRATIVE: CASE EVENT DATE: 20120301
